FAERS Safety Report 24263337 (Version 1)
Quarter: 2024Q3

REPORT INFORMATION
  Report Type: Report from Study
  Country: US (occurrence: US)
  Receive Date: 20240829
  Receipt Date: 20240829
  Transmission Date: 20241017
  Serious: No
  Sender: ASTELLAS
  Company Number: US-ASTELLAS-2024US023023

PATIENT

DRUGS (1)
  1. AVACINCAPTAD PEGOL [Suspect]
     Active Substance: AVACINCAPTAD PEGOL
     Indication: Product used for unknown indication
     Dosage: 1 VIAL EVERY 28 DAYS
     Route: 050

REACTIONS (2)
  - No adverse event [Unknown]
  - Device issue [Unknown]
